FAERS Safety Report 21227903 (Version 2)
Quarter: 2022Q4

REPORT INFORMATION
  Report Type: Spontaneous
  Country: JP (occurrence: JP)
  Receive Date: 20220818
  Receipt Date: 20221013
  Transmission Date: 20230112
  Serious: Yes (Death, Other)
  Sender: FDA-Public Use
  Company Number: JP-BRISTOL-MYERS SQUIBB COMPANY-2022-088008

PATIENT
  Age: 9 Decade
  Sex: Male

DRUGS (2)
  1. ELIQUIS [Suspect]
     Active Substance: APIXABAN
     Indication: Deep vein thrombosis
     Route: 048
  2. HEPARIN [Concomitant]
     Active Substance: HEPARIN SODIUM
     Indication: Thrombophlebitis migrans
     Route: 065

REACTIONS (5)
  - Cerebral infarction [Fatal]
  - Endocarditis noninfective [Unknown]
  - Cholangitis [Unknown]
  - General physical health deterioration [Unknown]
  - Malignant neoplasm progression [Fatal]
